FAERS Safety Report 20309804 (Version 2)
Quarter: 2022Q1

REPORT INFORMATION
  Report Type: Spontaneous
  Country: CH (occurrence: CH)
  Receive Date: 20220107
  Receipt Date: 20220111
  Transmission Date: 20220423
  Serious: Yes (Other)
  Sender: FDA-Public Use
  Company Number: None

PATIENT
  Age: 57 Year
  Sex: Male

DRUGS (11)
  1. CYTARABINE [Interacting]
     Active Substance: CYTARABINE
     Dosage: UNK, EVERY 3 WEEKS (8 CYCLES)
     Route: 037
     Dates: start: 20210518, end: 20211011
  2. CYTARABINE [Interacting]
     Active Substance: CYTARABINE
     Dosage: 5 CYCLES
     Route: 042
     Dates: start: 20210603, end: 20211007
  3. METHOTREXATE SODIUM [Interacting]
     Active Substance: METHOTREXATE SODIUM
     Indication: Burkitt^s lymphoma stage IV
     Dosage: UNK UNK, EVERY 3 WEEKS, 8 CYCLES
     Route: 037
     Dates: start: 20210518, end: 20211011
  4. METHOTREXATE SODIUM [Interacting]
     Active Substance: METHOTREXATE SODIUM
     Dosage: 4 CYCLES
     Route: 042
     Dates: start: 20210603, end: 20211007
  5. VINCRISTINE SULFATE [Interacting]
     Active Substance: VINCRISTINE SULFATE
     Indication: Burkitt^s lymphoma stage IV
     Dosage: 5 CYCLES
     Route: 042
     Dates: start: 20210506, end: 20210917
  6. CYCLOPHOSPHAMIDE [Interacting]
     Active Substance: CYCLOPHOSPHAMIDE
     Indication: Burkitt^s lymphoma stage IV
     Dosage: 5 CYCLES
     Route: 042
     Dates: start: 20210506, end: 20210917
  7. DOXORUBICIN [Concomitant]
     Active Substance: DOXORUBICIN
     Dosage: 5 CYCLES
     Dates: start: 20210506, end: 20210917
  8. PREDNISONE [Concomitant]
     Active Substance: PREDNISONE
     Dosage: 5 CYCLES
     Dates: start: 20210506, end: 20210917
  9. DEXAMETHASONE [Concomitant]
     Active Substance: DEXAMETHASONE
     Dosage: 5 CYCLES
     Dates: start: 20210506, end: 20210917
  10. ETOPOSIDE [Concomitant]
     Active Substance: ETOPOSIDE
     Dosage: 1 CYCLE
     Dates: start: 20210506, end: 20210527
  11. RITUXIMAB [Concomitant]
     Active Substance: RITUXIMAB
     Dosage: 5 CYCLES
     Dates: start: 20210512, end: 20211007

REACTIONS (5)
  - Paraplegia [Recovering/Resolving]
  - Hypoaesthesia [Recovering/Resolving]
  - Myelopathy [Recovering/Resolving]
  - Loss of proprioception [Recovering/Resolving]
  - Drug interaction [Recovering/Resolving]

NARRATIVE: CASE EVENT DATE: 20211001
